FAERS Safety Report 5715584-0 (Version None)
Quarter: 2008Q2

REPORT INFORMATION
  Report Type: 
  Country: None (occurrence: None)
  Receive Date: 20080423
  Receipt Date: 20080423
  Transmission Date: 20081010
  Serious: No
  Sender: FDA-Public Use
  Company Number: None

PATIENT
  Age: 15 Year
  Sex: Female

DRUGS (7)
  1. BIAXIN [Suspect]
     Indication: BRONCHITIS
     Dosage: BID PO
     Route: 048
  2. PREDNISONE [Concomitant]
  3. ADVAIR HFA [Concomitant]
  4. ALBUTEROL [Concomitant]
  5. ALBUTEROL [Concomitant]
  6. NASONEX [Concomitant]
  7. SINGULAIR [Concomitant]

REACTIONS (3)
  - BRONCHITIS [None]
  - RASH [None]
  - URTICARIA [None]
